FAERS Safety Report 10583935 (Version 1)
Quarter: 2014Q4

REPORT INFORMATION
  Report Type: Spontaneous
  Country: SI (occurrence: None)
  Receive Date: 20141112
  Receipt Date: 20141112
  Transmission Date: 20150529
  Serious: Yes (Hospitalization, Other)
  Sender: FDA-Public Use
  Company Number: SI-ZYDUS-005328

PATIENT
  Age: 2 Year
  Sex: Male

DRUGS (2)
  1. LEVETIRACETAM (LEVETIRACETAM) [Suspect]
     Active Substance: LEVETIRACETAM
     Dosage: 40.00 MG/KG-1.00DAYS
  2. SODIUM VALPROATE (SODIUM VALPROATE) [Suspect]
     Active Substance: VALPROATE SODIUM
     Dosage: 30.00-MG/KG-1.00DAYS

REACTIONS (4)
  - Drug reaction with eosinophilia and systemic symptoms [None]
  - Upper respiratory tract infection [None]
  - Lethargy [None]
  - Coma [None]
